FAERS Safety Report 16138762 (Version 1)
Quarter: 2019Q2

REPORT INFORMATION
  Report Type: Spontaneous
  Country: US (occurrence: US)
  Receive Date: 20190401
  Receipt Date: 20190401
  Transmission Date: 20190711
  Serious: No
  Sender: FDA-Public Use
  Company Number: US-ELI_LILLY_AND_COMPANY-US201903016018

PATIENT
  Sex: Female

DRUGS (1)
  1. TRULICITY [Suspect]
     Active Substance: DULAGLUTIDE
     Indication: TYPE 2 DIABETES MELLITUS
     Dosage: 0.75 MG, UNKNOWN
     Route: 058
     Dates: start: 20190228

REACTIONS (7)
  - Ocular hyperaemia [Unknown]
  - Erythema [Unknown]
  - Rheumatoid arthritis [Unknown]
  - Pharyngeal swelling [Unknown]
  - Swelling [Unknown]
  - Mouth swelling [Unknown]
  - Eye swelling [Unknown]
